FAERS Safety Report 9167401 (Version 1)
Quarter: 2013Q1

REPORT INFORMATION
  Report Type: Spontaneous
  Country: US (occurrence: US)
  Receive Date: 20130318
  Receipt Date: 20130318
  Transmission Date: 20140127
  Serious: No
  Sender: FDA-Public Use
  Company Number: US-009507513-1303USA006459

PATIENT
  Age: 61 Year
  Sex: Female
  Weight: 74.83 kg

DRUGS (6)
  1. BOCEPREVIR [Suspect]
     Indication: CHRONIC HEPATITIS C
     Dosage: UNK
     Route: 048
     Dates: start: 20120716
  2. PEGINTERFERON ALFA-2A [Suspect]
     Indication: CHRONIC HEPATITIS C
     Dosage: 180 MICROGRAM, QW
     Route: 058
     Dates: start: 20120618
  3. RIBAVIRIN [Suspect]
     Indication: CHRONIC HEPATITIS C
     Dosage: 1000 MG, UNK
     Route: 048
     Dates: start: 20120618
  4. RIBAVIRIN [Suspect]
     Dosage: 600 MG, UNK
     Route: 048
  5. PROCRIT [Concomitant]
     Dosage: 1 DF, QW
  6. EQUATE ANTIFUNGAL CREAM [Concomitant]

REACTIONS (10)
  - Weight increased [Unknown]
  - Stress [Unknown]
  - Stomatitis [Unknown]
  - Injection site pain [Unknown]
  - Anaemia [Unknown]
  - Feeling abnormal [Unknown]
  - Dry skin [Unknown]
  - Rash [Unknown]
  - Skin disorder [Unknown]
  - Blister [Unknown]
